FAERS Safety Report 13636563 (Version 1)
Quarter: 2017Q2

REPORT INFORMATION
  Report Type: Spontaneous
  Country: US (occurrence: US)
  Receive Date: 20170608
  Receipt Date: 20170608
  Transmission Date: 20170830
  Serious: No
  Sender: FDA-Public Use
  Company Number: None

PATIENT
  Age: 42 Year
  Sex: Female

DRUGS (1)
  1. ENTECAVIR TAB 1MG [Suspect]
     Active Substance: ENTECAVIR

REACTIONS (5)
  - Abdominal distension [None]
  - Dizziness [None]
  - Pruritus [None]
  - Fatigue [None]
  - Dyspnoea [None]

NARRATIVE: CASE EVENT DATE: 20170608
